FAERS Safety Report 9459693 (Version 1)
Quarter: 2013Q3

REPORT INFORMATION
  Report Type: Spontaneous
  Country: CN (occurrence: CN)
  Receive Date: 20130815
  Receipt Date: 20130815
  Transmission Date: 20140515
  Serious: Yes (Other)
  Sender: FDA-Public Use
  Company Number: CN-PERRIGO-13CN008161

PATIENT
  Age: 63 Year
  Sex: Female

DRUGS (4)
  1. GENTAMICIN SULFATE RX 0.1% 1A5 [Suspect]
     Indication: ANTIBIOTIC PROPHYLAXIS
     Dosage: UNK, UNK
     Route: 061
     Dates: start: 2006, end: 2006
  2. CEFAZOLIN [Suspect]
     Indication: ALPHA HAEMOLYTIC STREPTOCOCCAL INFECTION
     Dosage: UNK, UNK
     Route: 033
     Dates: start: 200611, end: 200611
  3. CEFAZOLIN [Suspect]
     Indication: PERITONITIS
  4. PREDNISOLONE [Concomitant]
     Indication: LUPUS NEPHRITIS
     Dosage: 5 MG, QD
     Route: 065

REACTIONS (3)
  - Mycobacterial peritonitis [Recovered/Resolved]
  - Mycobacterium fortuitum infection [Recovered/Resolved]
  - Peritonitis bacterial [Recovered/Resolved]
